FAERS Safety Report 19237842 (Version 2)
Quarter: 2021Q2

REPORT INFORMATION
  Report Type: Report from Study
  Country: US (occurrence: US)
  Receive Date: 20210510
  Receipt Date: 20210518
  Transmission Date: 20210717
  Serious: Yes (Other)
  Sender: FDA-Public Use
  Company Number: NVSC2021US101733

PATIENT
  Age: 70 Year
  Sex: Male
  Weight: 80 kg

DRUGS (1)
  1. KYMRIAH [Suspect]
     Active Substance: TISAGENLECLEUCEL
     Indication: DIFFUSE LARGE B-CELL LYMPHOMA
     Dosage: 1 ML (3.5 X 10^8)
     Route: 042
     Dates: start: 20210410, end: 20210504

REACTIONS (3)
  - Neurotoxicity [Unknown]
  - Pain [Unknown]
  - Cranial nerve disorder [Unknown]

NARRATIVE: CASE EVENT DATE: 20210503
